FAERS Safety Report 4635439-2 (Version None)
Quarter: 2005Q2

REPORT INFORMATION
  Report Type: 
  Country: None (occurrence: None)
  Receive Date: 20050413
  Receipt Date: 20050405
  Transmission Date: 20051028
  Serious: Yes (Other)
  Sender: FDA-Public Use
  Company Number: 05-04-0553

PATIENT
  Age: 51 Year
  Sex: Female

DRUGS (2)
  1. CLOZAPINE [Suspect]
     Dosage: 125-600MG QD ORAL
     Route: 048
     Dates: start: 20011101
  2. CHEMOTHERAPY FOR CANCER [Concomitant]

REACTIONS (2)
  - NEOPLASM MALIGNANT [None]
  - WHITE BLOOD CELL COUNT DECREASED [None]
